FAERS Safety Report 19785407 (Version 1)
Quarter: 2021Q3

REPORT INFORMATION
  Report Type: Spontaneous
  Country: TR (occurrence: TR)
  Receive Date: 20210903
  Receipt Date: 20210903
  Transmission Date: 20211014
  Serious: Yes (Other)
  Sender: FDA-Public Use
  Company Number: TR-ACCORD-237334

PATIENT
  Age: 74 Year
  Sex: Female

DRUGS (3)
  1. SERTRALINE [Suspect]
     Active Substance: SERTRALINE HYDROCHLORIDE
     Indication: MAJOR DEPRESSION
     Dosage: DECREASED GRADUALLY TO 37.5 MG/DAY
  2. METFORMIN [Concomitant]
     Active Substance: METFORMIN HYDROCHLORIDE
     Indication: DIABETES MELLITUS
  3. MELATONIN [Concomitant]
     Active Substance: MELATONIN
     Indication: MAJOR DEPRESSION

REACTIONS (1)
  - Carcinoembryonic antigen increased [Recovered/Resolved]
